FAERS Safety Report 14069152 (Version 1)
Quarter: 2017Q4

REPORT INFORMATION
  Report Type: Spontaneous
  Country: DK (occurrence: DK)
  Receive Date: 20171010
  Receipt Date: 20171010
  Transmission Date: 20180321
  Serious: Yes (Other)
  Sender: FDA-Public Use
  Company Number: DK-TEVA-811813ACC

PATIENT
  Sex: Male

DRUGS (10)
  1. METEX (METHOTREXATE SODIUM) [Concomitant]
     Active Substance: METHOTREXATE SODIUM
     Indication: RHEUMATOID ARTHRITIS
     Route: 030
     Dates: start: 20150529
  2. HJERTEALBYL [Concomitant]
     Indication: ANTICOAGULANT THERAPY
     Dosage: 75 MILLIGRAM DAILY;
     Route: 048
     Dates: start: 20161022
  3. LANSOPRAZOL ^KRKA^ [Concomitant]
     Indication: GASTROOESOPHAGEAL REFLUX PROPHYLAXIS
     Dosage: 15 MILLIGRAM DAILY; START DATE NOT KNOWN, BUT BEFORE SEPTEMBER 2015
     Route: 048
  4. TRAMADOL RETARD ^ACTAVIS^ [Suspect]
     Active Substance: TRAMADOL
     Indication: ARTHRALGIA
     Dosage: DOSAGE: 1 TABLET IN THE MORNING AND EVENING WHEN NEEDED
     Route: 048
     Dates: start: 20160318, end: 20170620
  5. RAMIPRIL/HYDROCHLORTHIAZID ^1A FARMA^ [Concomitant]
     Indication: HYPERTENSION
     Dosage: .5 DOSAGE FORMS DAILY; DOSAGE: 1/2 TABLET IN THE MORNING, STRENGHT: 5 + 25 MG
     Route: 048
  6. PINEX [Concomitant]
     Active Substance: ACETAMINOPHEN
     Indication: PAIN
     Dosage: DOSAGE: 2 TABLETS AS NEEDED, NO MORE THAN 4 TIMES DAILY
     Route: 048
     Dates: start: 20140725
  7. FOLIMET [Concomitant]
     Indication: VITAMIN SUPPLEMENTATION
     Route: 048
     Dates: start: 20151222
  8. CIALIS [Concomitant]
     Active Substance: TADALAFIL
     Indication: ERECTILE DYSFUNCTION
     Dosage: DOSAGE: 1 TABLET AS NEEDED, 30 MIN BEFORE EFFECT IS DESIRED
     Route: 048
     Dates: start: 20170406
  9. PLAQUENIL [Concomitant]
     Active Substance: HYDROXYCHLOROQUINE SULFATE
     Indication: RHEUMATOID ARTHRITIS
     Dosage: 200 MILLIGRAM DAILY;
     Route: 048
  10. SALAZOPYRIN [Concomitant]
     Active Substance: SULFASALAZINE
     Indication: GASTROINTESTINAL INFLAMMATION
     Dosage: DOSAGE: 3 TABLETS IN THE MORNING AND 2 TABLETS EVENING,
     Route: 048

REACTIONS (6)
  - Fatigue [Recovered/Resolved]
  - Speech disorder [Recovered/Resolved]
  - Dependence [Recovered/Resolved]
  - Malaise [Recovered/Resolved]
  - Salivary hypersecretion [Recovered/Resolved]
  - Lethargy [Recovered/Resolved]
